FAERS Safety Report 21654951 (Version 1)
Quarter: 2022Q4

REPORT INFORMATION
  Report Type: Report from Study
  Country: US (occurrence: US)
  Receive Date: 20221129
  Receipt Date: 20221129
  Transmission Date: 20230113
  Serious: No
  Sender: FDA-Public Use
  Company Number: US-ABBVIE-4185011

PATIENT
  Age: 46 Year
  Sex: Female

DRUGS (1)
  1. HUMIRA [Suspect]
     Active Substance: ADALIMUMAB
     Indication: Hidradenitis
     Dosage: CF
     Route: 058

REACTIONS (5)
  - Hidradenitis [Not Recovered/Not Resolved]
  - Injection site swelling [Unknown]
  - Feeling abnormal [Unknown]
  - Anger [Unknown]
  - Malaise [Unknown]

NARRATIVE: CASE EVENT DATE: 20221001
